FAERS Safety Report 7844878-8 (Version None)
Quarter: 2011Q4

REPORT INFORMATION
  Report Type: 
  Country: None (occurrence: None)
  Receive Date: 20111025
  Receipt Date: 20111017
  Transmission Date: 20120403
  Serious: Yes (Other)
  Sender: FDA-Public Use
  Company Number: US-GLAXOSMITHKLINE-Z0012316A

PATIENT
  Age: 72 Year
  Sex: Male
  Weight: 75.8 kg

DRUGS (2)
  1. TOPOTECAN [Suspect]
     Indication: NEOPLASM
     Dosage: 2.5MG CYCLIC
     Route: 048
     Dates: start: 20110907
  2. PAZOPANIB [Suspect]
     Indication: NEOPLASM
     Dosage: 800MG PER DAY
     Route: 048
     Dates: start: 20110824

REACTIONS (1)
  - HEPATIC ENZYME INCREASED [None]
